FAERS Safety Report 9809838 (Version 2)
Quarter: 2015Q1

REPORT INFORMATION
  Report Type: Spontaneous
  Country: US (occurrence: US)
  Receive Date: 20140110
  Receipt Date: 20150218
  Transmission Date: 20150721
  Serious: Yes (Death, Other)
  Sender: FDA-Public Use
  Company Number: US-SANOFI-AVENTIS-2013SA067308

PATIENT
  Sex: Female

DRUGS (2)
  1. PLAVIX [Suspect]
     Active Substance: CLOPIDOGREL BISULFATE
     Route: 065
     Dates: start: 20040101
  2. ASPIRIN. [Concomitant]
     Active Substance: ASPIRIN

REACTIONS (4)
  - Transient ischaemic attack [Fatal]
  - Cerebrovascular accident [Fatal]
  - Gastrointestinal haemorrhage [Fatal]
  - Anaemia [Unknown]

NARRATIVE: CASE EVENT DATE: 201210
